FAERS Safety Report 9932309 (Version 1)
Quarter: 2014Q1

REPORT INFORMATION
  Report Type: Spontaneous
  Country: US (occurrence: US)
  Receive Date: 20140228
  Receipt Date: 20140228
  Transmission Date: 20141002
  Serious: No
  Sender: FDA-Public Use
  Company Number: US-GLAXOSMITHKLINE-A0975978B

PATIENT
  Age: 4 Month
  Sex: Female

DRUGS (4)
  1. LAMOTRIGINE [Suspect]
     Indication: DEPRESSION
     Dosage: 150MG PER DAY
     Route: 063
     Dates: start: 201202
  2. SERTRALINE [Concomitant]
     Dates: end: 20120430
  3. PHENERGAN [Concomitant]
  4. ZOPHREN [Concomitant]

REACTIONS (4)
  - Abdominal pain [Unknown]
  - Emotional distress [Unknown]
  - Foetal exposure during pregnancy [Unknown]
  - Exposure during breast feeding [Unknown]
